FAERS Safety Report 7220158-9 (Version None)
Quarter: 2011Q1

REPORT INFORMATION
  Report Type: 
  Country: None (occurrence: None)
  Receive Date: 20110111
  Receipt Date: 20100526
  Transmission Date: 20110831
  Serious: Yes (Life-Threatening, Hospitalization)
  Sender: FDA-Public Use
  Company Number: US-BAYER-201017012NA

PATIENT
  Sex: Female
  Weight: 97.506 kg

DRUGS (4)
  1. NSAID'S [Concomitant]
     Dosage: UNK
  2. ZOLOFT [Concomitant]
     Indication: ANXIETY
     Dosage: DAILY DOSE 50 MG
     Dates: start: 20000101
  3. YAZ [Suspect]
     Indication: PREMENSTRUAL SYNDROME
     Route: 048
     Dates: start: 20070318, end: 20070430
  4. ATENOLOL [Concomitant]
     Dosage: 50 MG, UNK

REACTIONS (7)
  - ANAEMIA [None]
  - DEEP VEIN THROMBOSIS [None]
  - VAGINAL HAEMORRHAGE [None]
  - DYSPNOEA [None]
  - PULMONARY INFARCTION [None]
  - PULMONARY EMBOLISM [None]
  - CHEST PAIN [None]
